FAERS Safety Report 14525619 (Version 3)
Quarter: 2018Q4

REPORT INFORMATION
  Report Type: Spontaneous
  Country: US (occurrence: US)
  Receive Date: 20180213
  Receipt Date: 20181213
  Transmission Date: 20190204
  Serious: Yes (Other)
  Sender: FDA-Public Use
  Company Number: US-PFIZER INC-2018061688

PATIENT
  Age: 69 Year
  Sex: Female
  Weight: 121.5 kg

DRUGS (6)
  1. CELEBREX [Suspect]
     Active Substance: CELECOXIB
     Indication: OSTEOARTHRITIS
     Dosage: UNK, DAILY
  2. GABAPENTIN. [Concomitant]
     Active Substance: GABAPENTIN
     Indication: FIBROMYALGIA
     Dosage: 300 MG, UNK
  3. CELEBREX [Suspect]
     Active Substance: CELECOXIB
     Indication: OSTEOPOROSIS
     Dosage: UNK, TOOK IT EVERY OTHER DAY
     Route: 048
  4. CELEBREX [Suspect]
     Active Substance: CELECOXIB
     Dosage: UNK, ALTERNATE DAY (TRIED TAKING IT EVERY OTHER DAY THIS WEEK)
     Dates: start: 20180204
  5. CELEBREX [Suspect]
     Active Substance: CELECOXIB
     Dosage: 200 MG, RESUMED BACK TO DAILY
     Route: 048
  6. CYMBALTA [Concomitant]
     Active Substance: DULOXETINE HYDROCHLORIDE
     Indication: FIBROMYALGIA
     Dosage: 60 MG, UNK

REACTIONS (4)
  - Cataract [Unknown]
  - Intentional product misuse [Unknown]
  - Product dose omission [Unknown]
  - Product use issue [Unknown]

NARRATIVE: CASE EVENT DATE: 20180204
